FAERS Safety Report 4492149-2 (Version None)
Quarter: 2004Q4

REPORT INFORMATION
  Report Type: 
  Country: None (occurrence: None)
  Receive Date: 20041103
  Receipt Date: 20041012
  Transmission Date: 20050328
  Serious: Yes (Other)
  Sender: FDA-Public Use
  Company Number: CA-GLAXOSMITHKLINE-A0530484A

PATIENT
  Age: 49 Year
  Sex: Female
  Weight: 70 kg

DRUGS (8)
  1. ADVAIR [Suspect]
     Indication: CHRONIC OBSTRUCTIVE AIRWAYS DISEASE
     Dosage: 1PUFF TWICE PER DAY
     Route: 055
     Dates: start: 20040504
  2. COMBIVIR [Concomitant]
     Route: 065
  3. CELEBREX [Concomitant]
     Route: 065
  4. FLUOXETINE [Concomitant]
     Route: 065
  5. CYCLOBENZAPRINE HCL [Concomitant]
     Route: 065
  6. TYLENOL W/ CODEINE NO. 3 [Concomitant]
     Route: 065
  7. BIAXIN [Concomitant]
     Route: 065
  8. VIOXX [Concomitant]
     Route: 065

REACTIONS (3)
  - APHONIA [None]
  - NEOPLASM [None]
  - PHARYNGEAL NEOPLASM [None]
